FAERS Safety Report 7791960-X (Version None)
Quarter: 2011Q4

REPORT INFORMATION
  Report Type: 
  Country: None (occurrence: None)
  Receive Date: 20111003
  Receipt Date: 20110929
  Transmission Date: 20120403
  Serious: Yes (Other)
  Sender: FDA-Public Use
  Company Number: US-PFIZER INC-2011232658

PATIENT
  Sex: Female

DRUGS (4)
  1. TYLENOL-500 [Suspect]
  2. CARVEDILOL [Suspect]
  3. VERAPAMIL HCL [Suspect]
  4. NITROGLYCERIN [Suspect]

REACTIONS (1)
  - CEREBROVASCULAR ACCIDENT [None]
